FAERS Safety Report 12701282 (Version 14)
Quarter: 2017Q4

REPORT INFORMATION
  Report Type: Report from Study
  Country: CA (occurrence: CA)
  Receive Date: 20160831
  Receipt Date: 20171205
  Transmission Date: 20180320
  Serious: Yes (Hospitalization, Other)
  Sender: FDA-Public Use
  Company Number: CA-BRISTOL-MYERS SQUIBB COMPANY-BMS-2016-019709

PATIENT
  Age: 61 Year
  Sex: Female

DRUGS (2)
  1. ABATACEPT [Suspect]
     Active Substance: ABATACEPT
     Indication: PRODUCT USED FOR UNKNOWN INDICATION
     Dosage: 500 MG, Q4WK
     Route: 042
     Dates: start: 20170310
  2. ABATACEPT [Suspect]
     Active Substance: ABATACEPT
     Indication: RHEUMATOID ARTHRITIS
     Dosage: 500 MG, Q4WK
     Route: 042
     Dates: start: 20150612

REACTIONS (15)
  - Impaired healing [Unknown]
  - Intestinal obstruction [Recovered/Resolved]
  - Heart rate increased [Unknown]
  - Vomiting [Recovered/Resolved]
  - Joint dislocation [Unknown]
  - Hernia [Recovering/Resolving]
  - Myocardial infarction [Unknown]
  - Pneumonia [Recovering/Resolving]
  - Chest pain [Unknown]
  - Musculoskeletal discomfort [Recovering/Resolving]
  - Pain in extremity [Not Recovered/Not Resolved]
  - Inflammation [Recovering/Resolving]
  - Vascular fragility [Unknown]
  - Hip arthroplasty [Recovering/Resolving]
  - Weight decreased [Unknown]

NARRATIVE: CASE EVENT DATE: 20160810
